FAERS Safety Report 8471077 (Version 3)
Quarter: 2014Q1

REPORT INFORMATION
  Report Type: Spontaneous
  Country: US (occurrence: US)
  Receive Date: 20120322
  Receipt Date: 20140312
  Transmission Date: 20141002
  Serious: Yes (Hospitalization, Other)
  Sender: FDA-Public Use
  Company Number: US-BAYER-2012-024621

PATIENT
  Age: 28 Year
  Sex: Female
  Weight: 95 kg

DRUGS (8)
  1. YAZ [Suspect]
     Dosage: UNK
     Dates: start: 200205, end: 200504
  2. YAZ [Suspect]
     Dosage: UNK
     Dates: start: 200603
  3. YASMIN [Suspect]
     Dosage: UNK
     Dates: start: 200205, end: 200504
  4. YASMIN [Suspect]
     Dosage: UNK
     Dates: start: 200603
  5. ASTEPRO [Concomitant]
     Dosage: UNK UNK, BID
     Dates: start: 20100429
  6. VITAMIN C [Concomitant]
     Dosage: 500 MG, QD
     Dates: start: 20100429
  7. OMEGA 3 [Concomitant]
     Dosage: UNK
     Dates: start: 20100505
  8. CALCIUM D [Concomitant]
     Dosage: UNK
     Dates: start: 20100505

REACTIONS (7)
  - Cholecystectomy [None]
  - Cholecystitis chronic [None]
  - Injury [None]
  - Emotional distress [None]
  - Pain [None]
  - General physical health deterioration [None]
  - Anxiety [None]
